FAERS Safety Report 5321581-X (Version None)
Quarter: 2007Q2

REPORT INFORMATION
  Report Type: 
  Country: None (occurrence: None)
  Receive Date: 20070510
  Receipt Date: 20070426
  Transmission Date: 20071010
  Serious: Yes (Other)
  Sender: FDA-Public Use
  Company Number: FR-ROCHE-496094

PATIENT
  Age: 34 Year
  Sex: Male

DRUGS (3)
  1. CELLCEPT [Suspect]
     Indication: PROPHYLAXIS AGAINST TRANSPLANT REJECTION
     Route: 065
  2. RAPAMYCIN [Concomitant]
     Dosage: DRUG NAME REPORTED AS RAPAMYCINE
     Route: 065
  3. CORTICOSTEROIDS [Concomitant]
     Route: 065

REACTIONS (1)
  - INFERTILITY [None]
